FAERS Safety Report 4979603-1 (Version None)
Quarter: 2006Q2

REPORT INFORMATION
  Report Type: 
  Country: None (occurrence: None)
  Receive Date: 20060418
  Receipt Date: 20060331
  Transmission Date: 20061013
  Serious: Yes (Hospitalization, Other)
  Sender: FDA-Public Use
  Company Number: JP200602000307

PATIENT
  Age: 61 Year
  Sex: Female
  Weight: 57.3 kg

DRUGS (4)
  1. ZYPREXA [Suspect]
     Indication: SCHIZOPHRENIA
     Dosage: 5 MG, EACH EVENING, ORAL
     Route: 048
     Dates: start: 20051213, end: 20060131
  2. LEVOTOMIN (LEVOMEPROMAZINE MALEATE) [Concomitant]
  3. RIVOTRIL /NOR/ (CLONAZEPAM) [Concomitant]
  4. BROTIZOLAM            (BROTIZOLAM) [Concomitant]

REACTIONS (8)
  - BLOOD CHOLESTEROL INCREASED [None]
  - BLOOD TRIGLYCERIDES INCREASED [None]
  - CONDITION AGGRAVATED [None]
  - DIABETES MELLITUS [None]
  - PLEURAL EFFUSION [None]
  - REFLUX OESOPHAGITIS [None]
  - RENAL CELL CARCINOMA STAGE UNSPECIFIED [None]
  - VISUAL ACUITY REDUCED [None]
